FAERS Safety Report 4408247-5 (Version None)
Quarter: 2004Q3

REPORT INFORMATION
  Report Type: 
  Country: None (occurrence: None)
  Receive Date: 20040722
  Receipt Date: 20040713
  Transmission Date: 20050211
  Serious: Yes (Hospitalization, Congenital Anomaly)
  Sender: FDA-Public Use
  Company Number: 2004046784

PATIENT
  Sex: Male

DRUGS (2)
  1. SERTRALINE (SERTRALINE) [Suspect]
     Indication: DEPRESSION
     Dosage: 100 MG (50 MG, 2 IN 1 D)
  2. PIMOZIDE (PIMOZIDE) [Suspect]
     Indication: ILL-DEFINED DISORDER

REACTIONS (2)
  - DOUBLE OUTLET RIGHT VENTRICLE [None]
  - DRUG EXPOSURE DURING PREGNANCY [None]
